FAERS Safety Report 24119257 (Version 3)
Quarter: 2024Q3

REPORT INFORMATION
  Report Type: Spontaneous
  Country: US (occurrence: US)
  Receive Date: 20240722
  Receipt Date: 20240808
  Transmission Date: 20241017
  Serious: No
  Sender: TORRENT
  Company Number: US-TORRENT-00013677

PATIENT
  Age: 41 Year
  Sex: Male
  Weight: 86 kg

DRUGS (3)
  1. TIOPRONIN [Suspect]
     Active Substance: TIOPRONIN
     Indication: Cystinuria
     Dosage: 100 MG, 2 TABLETS, 3 TIMES A DAY
     Route: 048
     Dates: start: 20240611, end: 20240709
  2. UNSPECIFIED INGREDIENT [Concomitant]
     Active Substance: UNSPECIFIED INGREDIENT
     Indication: Seasonal allergy
     Dosage: ONCE A DAY DAILY
     Route: 048
  3. LOSARTAN [Concomitant]
     Active Substance: LOSARTAN\LOSARTAN POTASSIUM
     Indication: Hypertension
     Dosage: ONCE A DAY DAILY
     Route: 048

REACTIONS (4)
  - Pruritus [Recovered/Resolved]
  - COVID-19 [Unknown]
  - Intentional product use issue [Unknown]
  - Therapy cessation [Unknown]

NARRATIVE: CASE EVENT DATE: 20240701
